FAERS Safety Report 7659686-0 (Version None)
Quarter: 2011Q3

REPORT INFORMATION
  Report Type: 
  Country: None (occurrence: None)
  Receive Date: 20110802
  Receipt Date: 20110725
  Transmission Date: 20111222
  Serious: Yes (Disabling, Other)
  Sender: FDA-Public Use
  Company Number: DSA_45442-2011

PATIENT
  Sex: Female

DRUGS (11)
  1. MELOXICAM [Concomitant]
  2. CALCIUM [Concomitant]
  3. EVENING  PRIMROSE OIL [Concomitant]
  4. VESICARE [Concomitant]
  5. VAGINAL	 RING [Concomitant]
  6. LITHIUM [Concomitant]
  7. NEXIUM	/01479302/ [Concomitant]
  8. PSYLLIUM SEED [Concomitant]
  9. ZINC [Concomitant]
  10. XENAZINE [Suspect]
     Indication: DYSKINESIA
     Dosage: (HALF OF A  TABLET THREE TIMES DAILY ORAL), (HALF OF TABLET BID ORAL)
     Route: 048
     Dates: start: 20110220
  11. XENAZINE [Suspect]
     Indication: DYSKINESIA
     Dosage: (HALF OF A  TABLET THREE TIMES DAILY ORAL), (HALF OF TABLET BID ORAL)
     Route: 048
     Dates: end: 20110417

REACTIONS (7)
  - APATHY [None]
  - NAUSEA [None]
  - SOMNOLENCE [None]
  - TREMOR [None]
  - DYSPHAGIA [None]
  - ORAL PAIN [None]
  - HALLUCINATION [None]
